FAERS Safety Report 9770906 (Version 2)
Quarter: 2014Q1

REPORT INFORMATION
  Report Type: Spontaneous
  Country: US (occurrence: US)
  Receive Date: 20131218
  Receipt Date: 20140114
  Transmission Date: 20141002
  Serious: No
  Sender: FDA-Public Use
  Company Number: US-BIOGENIDEC-2013BI120354

PATIENT
  Sex: Male

DRUGS (7)
  1. TECFIDERA [Suspect]
     Indication: MULTIPLE SCLEROSIS
     Route: 048
     Dates: start: 20131107
  2. ASPIRIN [Concomitant]
  3. JALYN [Concomitant]
  4. PANTOPRAZOLE SODIUM [Concomitant]
  5. VITAMIN D3 [Concomitant]
  6. CYANOCOBALAMIN [Concomitant]
  7. VITAMIN B COMPLEX [Concomitant]

REACTIONS (9)
  - Visual impairment [Unknown]
  - Deafness [Unknown]
  - Dysarthria [Unknown]
  - Cognitive disorder [Unknown]
  - Fatigue [Unknown]
  - Gait disturbance [Unknown]
  - Decreased appetite [Unknown]
  - Night sweats [Unknown]
  - Flushing [Unknown]
